FAERS Safety Report 6255685-4 (Version None)
Quarter: 2009Q3

REPORT INFORMATION
  Report Type: 
  Country: None (occurrence: None)
  Receive Date: 20090701
  Receipt Date: 20090625
  Transmission Date: 20100115
  Serious: Yes (Other)
  Sender: FDA-Public Use
  Company Number: 2009SP013163

PATIENT
  Age: 47 Year
  Sex: Male
  Weight: 75.2971 kg

DRUGS (1)
  1. CLARITIN [Suspect]
     Indication: SINUS DISORDER
     Dosage: 10 MG; ONCE; PO
     Route: 048
     Dates: start: 20090609

REACTIONS (7)
  - BLOOD PRESSURE INCREASED [None]
  - DRY MOUTH [None]
  - HEART RATE INCREASED [None]
  - PALPITATIONS [None]
  - POST PROCEDURAL COMPLICATION [None]
  - RENAL DISORDER [None]
  - TONGUE DRY [None]
